FAERS Safety Report 6979121-5 (Version None)
Quarter: 2010Q3

REPORT INFORMATION
  Report Type: 
  Country: None (occurrence: None)
  Receive Date: 20100913
  Receipt Date: 20100901
  Transmission Date: 20110219
  Serious: Yes (Hospitalization)
  Sender: FDA-Public Use
  Company Number: PHHY2010US57971

PATIENT
  Sex: Female

DRUGS (1)
  1. ZOMETA [Suspect]
     Dosage: 4 MG, UNK

REACTIONS (5)
  - ANAEMIA [None]
  - BREAST CANCER [None]
  - HYPERCALCAEMIA [None]
  - METASTASES TO BONE [None]
  - RENAL FAILURE CHRONIC [None]
